FAERS Safety Report 4999298-0 (Version None)
Quarter: 2006Q2

REPORT INFORMATION
  Report Type: 
  Country: None (occurrence: None)
  Receive Date: 20060509
  Receipt Date: 20060509
  Transmission Date: 20061013
  Serious: Yes (Life-Threatening, Hospitalization, Other)
  Sender: FDA-Public Use
  Company Number: None

PATIENT
  Age: 65 Year
  Sex: Female
  Weight: 99.7913 kg

DRUGS (8)
  1. FENFLURAMINE [Suspect]
     Indication: OBESITY
     Dosage: DAILY  PO
     Route: 048
  2. FENFLURAMINE [Suspect]
     Indication: WEIGHT CONTROL
     Dosage: DAILY  PO
     Route: 048
  3. WARFARIN SODIUM [Concomitant]
  4. LEVOTHYROXINE SODIUM [Concomitant]
  5. FENOFEXADINE [Concomitant]
  6. PAROXETINE [Concomitant]
  7. FUROSEMIDE [Concomitant]
  8. POTASSIUM CHLORIDE [Concomitant]

REACTIONS (2)
  - PULMONARY HYPERTENSION [None]
  - RAYNAUD'S PHENOMENON [None]
